FAERS Safety Report 20342175 (Version 2)
Quarter: 2022Q1

REPORT INFORMATION
  Report Type: Report from Study
  Country: ES (occurrence: None)
  Receive Date: 20220117
  Receipt Date: 20220205
  Transmission Date: 20220423
  Serious: Yes (Hospitalization)
  Sender: FDA-Public Use
  Company Number: ES-ROCHE-2998274

PATIENT
  Age: 72 Year
  Sex: Male
  Weight: 83.8 kg

DRUGS (7)
  1. ATEZOLIZUMAB [Suspect]
     Active Substance: ATEZOLIZUMAB
     Indication: Non-small cell lung cancer
     Dosage: LAST DOSE ADMINISTERED-18/NOV/2020
     Route: 041
  2. BEVACIZUMAB [Suspect]
     Active Substance: BEVACIZUMAB
     Indication: Non-small cell lung cancer
     Dosage: LAST DOSE ADMINISTERED- 14/APR/2020
     Route: 042
  3. OMEPRAZOLE [Concomitant]
     Active Substance: OMEPRAZOLE
     Route: 048
     Dates: start: 20200113, end: 20200113
  4. ACETAMINOPHEN [Concomitant]
     Active Substance: ACETAMINOPHEN
     Route: 042
     Dates: start: 20200113, end: 20200113
  5. ATROPINE [Concomitant]
     Active Substance: ATROPINE
     Route: 058
     Dates: start: 20200113, end: 20200113
  6. DIAZEPAM [Concomitant]
     Active Substance: DIAZEPAM
     Route: 048
     Dates: start: 20200113, end: 20200113
  7. FUROSEMIDE [Concomitant]
     Active Substance: FUROSEMIDE
     Route: 048
     Dates: start: 20200113, end: 20200113

REACTIONS (1)
  - Biopsy kidney [Recovered/Resolved with Sequelae]

NARRATIVE: CASE EVENT DATE: 20210112
